FAERS Safety Report 10230621 (Version 2)
Quarter: 2014Q3

REPORT INFORMATION
  Report Type: Report from Study
  Country: US (occurrence: US)
  Receive Date: 20140611
  Receipt Date: 20140821
  Transmission Date: 20150326
  Serious: No
  Sender: FDA-Public Use
  Company Number: US-SA-2014SA075209

PATIENT
  Age: 53 Year
  Sex: Female

DRUGS (2)
  1. AUBAGIO [Suspect]
     Active Substance: TERIFLUNOMIDE
     Indication: MULTIPLE SCLEROSIS
     Route: 048
     Dates: start: 20140214
  2. COPAXONE [Concomitant]
     Active Substance: GLATIRAMER ACETATE
     Dates: start: 19990101, end: 20140213

REACTIONS (8)
  - Rhinorrhoea [Unknown]
  - Skin atrophy [Unknown]
  - Nasopharyngitis [Unknown]
  - Urinary incontinence [Unknown]
  - Alopecia [Unknown]
  - Contusion [Unknown]
  - Hypersensitivity [Unknown]
  - Depression [Unknown]

NARRATIVE: CASE EVENT DATE: 2014
